FAERS Safety Report 9524752 (Version 2)
Quarter: 2013Q4

REPORT INFORMATION
  Report Type: Spontaneous
  Country: FR (occurrence: FR)
  Receive Date: 20130916
  Receipt Date: 20131021
  Transmission Date: 20140711
  Serious: Yes (Other)
  Sender: FDA-Public Use
  Company Number: PHHY2013FR101738

PATIENT
  Age: 79 Year
  Sex: Male
  Weight: 95 kg

DRUGS (7)
  1. GLIVEC [Suspect]
     Indication: GASTROINTESTINAL STROMAL TUMOUR
     Dosage: 400 MG, QD
     Route: 048
     Dates: start: 200907
  2. PREVISCAN [Suspect]
     Dosage: UNK UKN, UNK
     Route: 048
     Dates: start: 200904
  3. FUROSEMIDE [Concomitant]
     Dosage: UNK UKN, UNK
     Route: 048
  4. CARDENSIEL [Concomitant]
     Dosage: UNK UKN, UNK
     Route: 048
  5. HEMIGOXINE [Concomitant]
     Dosage: UNK UKN, QD
     Route: 048
  6. BISOPROLOL [Concomitant]
     Dosage: 2.5 MG, BID
     Route: 048
  7. BUMETANIDE [Concomitant]
     Dosage: 5 MG, QD

REACTIONS (2)
  - Rheumatic disorder [Unknown]
  - Epistaxis [Recovered/Resolved]
